FAERS Safety Report 17671529 (Version 1)
Quarter: 2020Q2

REPORT INFORMATION
  Report Type: Other
  Country: US (occurrence: US)
  Receive Date: 20200415
  Receipt Date: 20200415
  Transmission Date: 20200713
  Serious: No
  Sender: FDA-Public Use
  Company Number: US-ALKERMES INC.-ALK-2019-006080

PATIENT
  Age: 32 Year
  Sex: Male
  Weight: 72 kg

DRUGS (1)
  1. VIVITROL [Suspect]
     Active Substance: NALTREXONE
     Indication: DRUG USE DISORDER
     Dosage: 380 MG, QMO
     Route: 030
     Dates: start: 20190613

REACTIONS (3)
  - Injection site reaction [Unknown]
  - Product use issue [Unknown]
  - Injection site swelling [Unknown]

NARRATIVE: CASE EVENT DATE: 20190613
